FAERS Safety Report 5086484-7 (Version None)
Quarter: 2006Q3

REPORT INFORMATION
  Report Type: 
  Country: None (occurrence: None)
  Receive Date: 20060823
  Receipt Date: 20060330
  Transmission Date: 20061208
  Serious: Yes (Hospitalization)
  Sender: FDA-Public Use
  Company Number: FR-AVENTIS-200611161FR

PATIENT
  Age: 38 Year
  Sex: Male
  Weight: 54 kg

DRUGS (10)
  1. TAXOTERE [Suspect]
     Indication: ADENOCARCINOMA
     Route: 042
     Dates: start: 20060223, end: 20060223
  2. STILNOX [Concomitant]
     Indication: DRUG USE FOR UNKNOWN INDICATION
  3. FORLAX [Concomitant]
     Indication: DRUG USE FOR UNKNOWN INDICATION
  4. RIVOTRIL [Concomitant]
     Indication: DRUG USE FOR UNKNOWN INDICATION
  5. SOLU-MEDROL [Concomitant]
     Indication: PREMEDICATION
     Route: 042
     Dates: start: 20060223, end: 20060223
  6. LAROXYL [Concomitant]
     Indication: DRUG USE FOR UNKNOWN INDICATION
  7. OMEPRAZOLE [Concomitant]
     Indication: DRUG USE FOR UNKNOWN INDICATION
  8. ZOPHREN [Concomitant]
     Indication: DRUG USE FOR UNKNOWN INDICATION
  9. ACETAMINOPHEN [Concomitant]
     Indication: DRUG USE FOR UNKNOWN INDICATION
  10. OXYCONTIN [Concomitant]
     Indication: DRUG USE FOR UNKNOWN INDICATION
     Route: 048

REACTIONS (6)
  - CHILLS [None]
  - HYPERHIDROSIS [None]
  - HYPOXIA [None]
  - OXYGEN SATURATION DECREASED [None]
  - PALLOR [None]
  - TACHYCARDIA [None]
